FAERS Safety Report 9296088 (Version 1)
Quarter: 2013Q2

REPORT INFORMATION
  Report Type: Spontaneous
  Country: US (occurrence: US)
  Receive Date: 20130517
  Receipt Date: 20130517
  Transmission Date: 20140414
  Serious: Yes (Other)
  Sender: FDA-Public Use
  Company Number: US-AMGEN-USASP2013033505

PATIENT
  Age: 74 Year
  Sex: Female

DRUGS (6)
  1. PROLIA [Suspect]
     Indication: OSTEOPOROSIS POSTMENOPAUSAL
     Dosage: 60 MG, UNK
     Dates: start: 20121016
  2. CALCIUM [Concomitant]
  3. VITAMIN A /00056001/ [Concomitant]
  4. VITAMIN D3 [Concomitant]
  5. MULTIVITAMIN                       /00097801/ [Concomitant]
  6. GLUCOSAMINE CHONDROITIN            /01430901/ [Concomitant]

REACTIONS (1)
  - Malignant melanoma [Unknown]
